FAERS Safety Report 16229570 (Version 1)
Quarter: 2019Q2

REPORT INFORMATION
  Report Type: Spontaneous
  Country: US (occurrence: US)
  Receive Date: 20190423
  Receipt Date: 20190423
  Transmission Date: 20190711
  Serious: No
  Sender: FDA-Public Use
  Company Number: US-ALKERMES INC.-ALK-2019-002084

PATIENT
  Age: 19 Year
  Sex: Female

DRUGS (1)
  1. ARISTADA [Suspect]
     Active Substance: ARIPIPRAZOLE LAUROXIL
     Indication: PRODUCT USED FOR UNKNOWN INDICATION
     Dosage: 662 MG, UNK
     Route: 030

REACTIONS (3)
  - Apathy [Not Recovered/Not Resolved]
  - Drug screen positive [Unknown]
  - Anger [Unknown]

NARRATIVE: CASE EVENT DATE: 20190320
